FAERS Safety Report 15246827 (Version 1)
Quarter: 2018Q3

REPORT INFORMATION
  Report Type: Report from Study
  Country: US (occurrence: US)
  Receive Date: 20180806
  Receipt Date: 20180806
  Transmission Date: 20181010
  Serious: Yes (Hospitalization, Other)
  Sender: FDA-Public Use
  Company Number: PHHO2013US001975

PATIENT
  Age: 64 Year
  Sex: Male
  Weight: 77 kg

DRUGS (22)
  1. TEMAZEPAM. [Concomitant]
     Active Substance: TEMAZEPAM
     Dosage: UNK
  2. PRILOSEC [Concomitant]
     Active Substance: OMEPRAZOLE MAGNESIUM
     Dosage: 20 MG, QD
     Route: 048
  3. COMPAZINE [Concomitant]
     Active Substance: PROCHLORPERAZINE MALEATE
     Indication: VOMITING
  4. ZYRTEC [Concomitant]
     Active Substance: CETIRIZINE HYDROCHLORIDE
     Indication: HYPERSENSITIVITY
     Dosage: 10 MG, UNK
     Route: 048
  5. LOMOTIL [Concomitant]
     Active Substance: ATROPINE SULFATE\DIPHENOXYLATE HYDROCHLORIDE
  6. AUGMENTIN [Concomitant]
     Active Substance: AMOXICILLIN\CLAVULANATE POTASSIUM
     Dosage: 875 MG, BID
     Route: 048
  7. TOPROL XL [Concomitant]
     Active Substance: METOPROLOL SUCCINATE
     Dosage: 100 MG, QD
     Route: 048
  8. COMPAZINE [Concomitant]
     Active Substance: PROCHLORPERAZINE MALEATE
     Indication: NAUSEA
     Dosage: 10 MG, EVERY 6 HOURS
     Route: 048
  9. FARYDAK [Suspect]
     Active Substance: PANOBINOSTAT
     Dosage: 400 MG, TIW (THU, SAT AND MON)
     Route: 048
     Dates: start: 20130523, end: 20140728
  10. SYMBICORT [Concomitant]
     Active Substance: BUDESONIDE\FORMOTEROL FUMARATE DIHYDRATE
     Dosage: UNK
  11. ACYCLOVIR. [Concomitant]
     Active Substance: ACYCLOVIR
     Dosage: 400 MG, TID
     Route: 048
     Dates: start: 20130107
  12. METOPROLOL SUCCINATE. [Concomitant]
     Active Substance: METOPROLOL SUCCINATE
     Dosage: 50 MG, QD
     Route: 048
  13. FARYDAK [Suspect]
     Active Substance: PANOBINOSTAT
     Indication: NON-HODGKIN^S LYMPHOMA
     Dosage: 400 MG, TIW (THU, SAT AND MON)
     Route: 048
     Dates: start: 20121018, end: 20121226
  14. CIALIS [Concomitant]
     Active Substance: TADALAFIL
  15. TOPROL XL [Concomitant]
     Active Substance: METOPROLOL SUCCINATE
     Dosage: 100 MG, QD
     Route: 048
     Dates: start: 20121021
  16. MULTIVITAMINS [Concomitant]
     Active Substance: VITAMINS
     Dosage: 1 DF, QD
     Route: 048
  17. MAGNESIUM [Concomitant]
     Active Substance: MAGNESIUM
     Dosage: 400 MG, BID
     Route: 048
  18. PROCHLORPERAZINE. [Concomitant]
     Active Substance: PROCHLORPERAZINE
     Dosage: 10 MG, QID
     Route: 048
  19. FARYDAK [Suspect]
     Active Substance: PANOBINOSTAT
     Dosage: 400 MG, TIW (THU, SAT AND MON)
     Route: 048
     Dates: end: 20130204
  20. RESTORIL [Concomitant]
     Active Substance: TEMAZEPAM
     Dosage: 30 MG, QD
     Route: 048
  21. IMODIUM [Concomitant]
     Active Substance: LOPERAMIDE HYDROCHLORIDE
  22. SP VITAMIN E [Concomitant]
     Dosage: 1 DF, QD
     Route: 048

REACTIONS (7)
  - Platelet count decreased [Recovered/Resolved]
  - Haemoglobin decreased [Unknown]
  - Pneumonia [Unknown]
  - Pneumonia streptococcal [Recovered/Resolved]
  - Pyrexia [Unknown]
  - Lung infection [Recovered/Resolved]
  - Platelet count decreased [Unknown]

NARRATIVE: CASE EVENT DATE: 20121224
